FAERS Safety Report 7622153-4 (Version None)
Quarter: 2011Q3

REPORT INFORMATION
  Report Type: 
  Country: None (occurrence: None)
  Receive Date: 20110720
  Receipt Date: 20110523
  Transmission Date: 20111222
  Serious: Yes (Hospitalization)
  Sender: FDA-Public Use
  Company Number: US-BAYER-2010-009242

PATIENT
  Sex: Female
  Weight: 61 kg

DRUGS (11)
  1. ULTRAM SR [Concomitant]
     Dosage: 100 MG, QD
     Route: 048
  2. PROTONIX [Concomitant]
     Dosage: 20 MG, QD
     Route: 048
  3. LYRICA [Concomitant]
     Route: 048
  4. IBUPROFEN [Concomitant]
     Indication: MIGRAINE
     Dosage: 800 MG, TID
     Route: 048
     Dates: start: 20070101, end: 20090101
  5. YAZ [Suspect]
     Dosage: UNK
     Dates: start: 20040101, end: 20080101
  6. TIZANIDINE HCL [Concomitant]
     Dosage: 2 MG, PRN
     Route: 048
  7. YASMIN [Suspect]
     Indication: PRODUCT USED FOR UNKNOWN INDICATION
     Dosage: UNK
     Dates: start: 20040101, end: 20080101
  8. TRAZODONE [Concomitant]
     Dosage: 100 MG, QD
     Route: 048
  9. VENLAFAXINE [Concomitant]
     Dosage: 37.5 MG, QD
     Route: 048
  10. LUTERA-28 [Concomitant]
     Dosage: 1 DF, QD
     Route: 048
  11. EFFEXOR XR [Concomitant]
     Dosage: 37.5 MG, BID
     Route: 048

REACTIONS (3)
  - PAIN [None]
  - CHOLECYSTITIS CHRONIC [None]
  - GALLBLADDER NON-FUNCTIONING [None]
